FAERS Safety Report 4662346-1 (Version None)
Quarter: 2005Q2

REPORT INFORMATION
  Report Type: 
  Country: None (occurrence: None)
  Receive Date: 20050516
  Receipt Date: 20050404
  Transmission Date: 20051028
  Serious: Yes (Other)
  Sender: FDA-Public Use
  Company Number: CA-JNJFOC-20050503248

PATIENT
  Sex: Female
  Weight: 83.92 kg

DRUGS (2)
  1. EXTRA STRENGTH TYLENOL [Suspect]
     Route: 049
  2. EXTRA STRENGTH TYLENOL [Suspect]
     Indication: DRUG USE FOR UNKNOWN INDICATION
     Dosage: PO QD FOR 2 WEEKS (UP TO 4000MG DAILY THE FIRST FEW DAYS, THEN 500MG BID)
     Route: 049

REACTIONS (2)
  - HAEMORRHAGE [None]
  - PURPURA [None]
